FAERS Safety Report 15393627 (Version 1)
Quarter: 2018Q3

REPORT INFORMATION
  Report Type: Report from Study
  Country: DE (occurrence: DE)
  Receive Date: 20180917
  Receipt Date: 20180917
  Transmission Date: 20181010
  Serious: Yes (Congenital Anomaly, Other)
  Sender: FDA-Public Use
  Company Number: DE-MYLANLABS-2018M1065573

PATIENT
  Sex: Male

DRUGS (7)
  1. HYDROCHLOROTHIAZIDE. [Concomitant]
     Active Substance: HYDROCHLOROTHIAZIDE
     Indication: HYPERTENSION
     Route: 064
  2. METOPROLOL. [Concomitant]
     Active Substance: METOPROLOL
     Indication: HYPERTENSION
     Route: 064
  3. VALSARTAN. [Suspect]
     Active Substance: VALSARTAN
     Indication: HYPERTENSION
     Route: 064
  4. AMLODIPINE [Concomitant]
     Active Substance: AMLODIPINE BESYLATE
     Indication: HYPERTENSION
     Route: 064
  5. ALLOPURINOL. [Concomitant]
     Active Substance: ALLOPURINOL
     Indication: HYPERTENSION
     Dosage: UNK
     Route: 064
  6. METHYLDOPA. [Concomitant]
     Active Substance: METHYLDOPA
     Indication: HYPERTENSION
     Route: 064
  7. DESLORATADINE. [Concomitant]
     Active Substance: DESLORATADINE
     Indication: HYPERTENSION
     Route: 064

REACTIONS (7)
  - Neonatal pneumonia [Unknown]
  - Respiratory distress [Unknown]
  - Patent ductus arteriosus [Unknown]
  - Infantile apnoea [Unknown]
  - Foetal exposure during pregnancy [Recovered/Resolved]
  - Eyelid ptosis congenital [Unknown]
  - Congenital umbilical hernia [Unknown]
